FAERS Safety Report 4541914-1 (Version None)
Quarter: 2004Q4

REPORT INFORMATION
  Report Type: 
  Country: None (occurrence: None)
  Receive Date: 20041229
  Receipt Date: 20041229
  Transmission Date: 20050328
  Serious: Yes (Life-Threatening, Hospitalization)
  Sender: FDA-Public Use
  Company Number: None

PATIENT
  Age: 85 Year
  Sex: Female
  Weight: 54 kg

DRUGS (9)
  1. SERTRALINE  50MG [Suspect]
     Indication: DEPRESSION
     Dosage: 50MG  DAILY ORAL
     Route: 048
     Dates: start: 20041120, end: 20041201
  2. COUMADIN [Concomitant]
  3. LASIX [Concomitant]
  4. ALTACE [Concomitant]
  5. TOPROL-XL [Concomitant]
  6. SYNTHROID [Concomitant]
  7. AMBIEN [Concomitant]
  8. NEXIUM [Concomitant]
  9. ALDACTONE [Concomitant]

REACTIONS (3)
  - CARDIAC FAILURE CONGESTIVE [None]
  - CONDITION AGGRAVATED [None]
  - HYPONATRAEMIA [None]
